FAERS Safety Report 16649226 (Version 2)
Quarter: 2019Q4

REPORT INFORMATION
  Report Type: Spontaneous
  Country: CA (occurrence: CA)
  Receive Date: 20190730
  Receipt Date: 20191028
  Transmission Date: 20200122
  Serious: Yes (Hospitalization, Other)
  Sender: FDA-Public Use
  Company Number: CA-TEVA-2019-CA-1083039

PATIENT
  Age: 21 Year
  Sex: Female

DRUGS (7)
  1. PHENYTOIN. [Suspect]
     Active Substance: PHENYTOIN
     Indication: POST-ANOXIC MYOCLONUS
     Route: 048
  2. PHENYTOIN. [Suspect]
     Active Substance: PHENYTOIN
     Indication: POST-ANOXIC MYOCLONUS
     Route: 042
  3. PROPOFOL. [Concomitant]
     Active Substance: PROPOFOL
  4. VALPROIC ACID. [Concomitant]
     Active Substance: VALPROIC ACID
  5. PROPOFOL. [Suspect]
     Active Substance: PROPOFOL
     Indication: MYOCLONUS
     Dosage: 48 MG/KG DAILY;
     Route: 065
  6. PHENYTOIN. [Suspect]
     Active Substance: PHENYTOIN
     Dosage: 500 MILLIGRAM DAILY;
     Route: 048
  7. PHENYTOIN. [Suspect]
     Active Substance: PHENYTOIN
     Indication: MYOCLONUS
     Route: 042

REACTIONS (3)
  - Myoclonic epilepsy [Recovered/Resolved]
  - Drug ineffective for unapproved indication [Unknown]
  - Condition aggravated [Unknown]
